FAERS Safety Report 12441880 (Version 2)
Quarter: 2016Q4

REPORT INFORMATION
  Report Type: Spontaneous
  Country: CA (occurrence: CA)
  Receive Date: 20160607
  Receipt Date: 20161011
  Transmission Date: 20170207
  Serious: Yes (Death, Hospitalization)
  Sender: FDA-Public Use
  Company Number: CA-NOVOPROD-494421

PATIENT
  Age: 96 Year
  Sex: Female
  Weight: 53 kg

DRUGS (2)
  1. NIASTASE RT [Suspect]
     Active Substance: COAGULATION FACTOR VIIA RECOMBINANT HUMAN
     Indication: PROCEDURAL HAEMORRHAGE
     Dosage: 2 MG
     Route: 042
     Dates: start: 20160419, end: 20160419
  2. NOREPINEPHRINE [Concomitant]
     Active Substance: NOREPINEPHRINE\NOREPINEPHRINE BITARTRATE
     Dosage: 7 MCG/MIN INFUSION (MAXIMUM DOSE)
     Route: 042

REACTIONS (3)
  - Arterial thrombosis [Fatal]
  - Off label use [Unknown]
  - Cerebrovascular accident [Fatal]

NARRATIVE: CASE EVENT DATE: 20160419
